FAERS Safety Report 21392173 (Version 1)
Quarter: 2022Q3

REPORT INFORMATION
  Report Type: Spontaneous
  Country: US (occurrence: None)
  Receive Date: 20220928
  Receipt Date: 20220928
  Transmission Date: 20221026
  Serious: Yes (Other)
  Sender: FDA-Public Use
  Company Number: None

PATIENT
  Age: 38 Year
  Sex: Male
  Weight: 61.2 kg

DRUGS (11)
  1. ANAKINRA [Suspect]
     Active Substance: ANAKINRA
     Indication: Chronic infantile neurological cutaneous and articular syndrome
     Dosage: FREQUENCY : DAILY;?
     Route: 058
  2. Prednisone 6mg daily [Concomitant]
     Dates: start: 19851113
  3. Methotrexate 5 mg weekly [Concomitant]
     Dates: start: 19900301, end: 20171030
  4. Duloxetine 120mg daily [Concomitant]
     Dates: start: 20121101
  5. Esomeprazole 40mh po daily [Concomitant]
     Dates: start: 19940101
  6. Hydrochlorothiazide 12.5mg po daily [Concomitant]
     Dates: start: 20111002
  7. Ranitidine 150mg po daily [Concomitant]
     Dates: start: 20150101
  8. Losartan 50mg po qhs [Concomitant]
     Dates: start: 20111101
  9. Allopurinol 100mg po daily [Concomitant]
     Dates: start: 20121108
  10. Atorvastatin 20mg po qhs [Concomitant]
     Dates: start: 20130101
  11. Amitriptyline 10mg po qhs [Concomitant]
     Dates: start: 20150101

REACTIONS (4)
  - Injection site nodule [None]
  - Skin mass [None]
  - Calcinosis [None]
  - Amyloidosis [None]
